FAERS Safety Report 8338176-6 (Version None)
Quarter: 2012Q2

REPORT INFORMATION
  Report Type: 
  Country: None (occurrence: None)
  Receive Date: 20120504
  Receipt Date: 20120424
  Transmission Date: 20120825
  Serious: Yes (Hospitalization)
  Sender: FDA-Public Use
  Company Number: US-JNJFOC-20120411744

PATIENT
  Sex: Male
  Weight: 48.08 kg

DRUGS (6)
  1. VITAMIN D [Concomitant]
  2. REMICADE [Suspect]
     Dosage: ONE INFUSION PRIOR TO STUDY
     Route: 042
     Dates: start: 20050725
  3. PREDNISONE TAB [Concomitant]
  4. REMICADE [Suspect]
     Indication: CROHN'S DISEASE
     Dosage: MOST RECENT DOSE
     Route: 042
     Dates: start: 20120417
  5. REMICADE [Suspect]
     Dosage: REPORTED AS HAVING 1 DOSE 7 YEARS PRIOR
     Route: 042
     Dates: start: 20120320
  6. MESALAMINE [Concomitant]

REACTIONS (1)
  - CROHN'S DISEASE [None]
